FAERS Safety Report 10479100 (Version 2)
Quarter: 2014Q4

REPORT INFORMATION
  Report Type: Report from Study
  Country: IT (occurrence: IT)
  Receive Date: 20140926
  Receipt Date: 20141227
  Transmission Date: 20150528
  Serious: Yes (Death, Hospitalization)
  Sender: FDA-Public Use
  Company Number: PHHY2014IT125363

PATIENT
  Age: 77 Year
  Sex: Male

DRUGS (2)
  1. CERTICAN [Suspect]
     Active Substance: EVEROLIMUS
     Indication: IMMUNOSUPPRESSANT DRUG THERAPY
     Dosage: 1.5 MG, QD
     Route: 048
     Dates: start: 20070322, end: 20121219
  2. CYCLOSPORIN [Concomitant]
     Active Substance: CYCLOSPORINE
     Indication: HEART TRANSPLANT
     Dosage: 100 MG, UNK
     Route: 065
     Dates: start: 20100315

REACTIONS (2)
  - Multi-organ failure [Fatal]
  - Chronic kidney disease [Fatal]

NARRATIVE: CASE EVENT DATE: 20121214
